FAERS Safety Report 5301112-0 (Version None)
Quarter: 2007Q2

REPORT INFORMATION
  Report Type: 
  Country: None (occurrence: None)
  Receive Date: 20070418
  Receipt Date: 20070411
  Transmission Date: 20071010
  Serious: Yes (Hospitalization)
  Sender: FDA-Public Use
  Company Number: CA-BOEHRINGER INGELHEIM GMBH, GERMANY-2007-CN-00234CN

PATIENT
  Sex: Female

DRUGS (1)
  1. MICARDIS HCT [Suspect]
     Dates: start: 20060315

REACTIONS (4)
  - CONTUSION [None]
  - FALL [None]
  - FOREARM FRACTURE [None]
  - HAND FRACTURE [None]
